FAERS Safety Report 11525999 (Version 2)
Quarter: 2015Q4

REPORT INFORMATION
  Report Type: Spontaneous
  Country: None (occurrence: US)
  Receive Date: 20150918
  Receipt Date: 20151102
  Transmission Date: 20160304
  Serious: Yes (Hospitalization)
  Sender: FDA-Public Use
  Company Number: OTH-PAT-2015015

PATIENT
  Age: 28 Year
  Sex: Male
  Weight: 63 kg

DRUGS (7)
  1. SIMVASTATIN. [Concomitant]
     Active Substance: SIMVASTATIN
  2. VITAMIN B12 [Concomitant]
     Active Substance: CYANOCOBALAMIN
  3. FOLIC ACID. [Concomitant]
     Active Substance: FOLIC ACID
  4. ASPRIN [Concomitant]
     Active Substance: ASPIRIN
  5. CYSTADANE [Suspect]
     Active Substance: BETAINE
     Indication: HOMOCYSTINURIA
     Route: 048
     Dates: start: 20140715
  6. DICLOFENAC [Concomitant]
     Active Substance: DICLOFENAC
  7. CITALOPRAM [Concomitant]
     Active Substance: CITALOPRAM HYDROBROMIDE

REACTIONS (4)
  - Inappropriate schedule of drug administration [Unknown]
  - Shoulder operation [Recovered/Resolved]
  - Road traffic accident [Unknown]
  - Overdose [Unknown]

NARRATIVE: CASE EVENT DATE: 20140715
